FAERS Safety Report 7942207 (Version 13)
Quarter: 2013Q3

REPORT INFORMATION
  Report Type: Spontaneous
  Country: US (occurrence: US)
  Receive Date: 20110512
  Receipt Date: 20130814
  Transmission Date: 20140515
  Serious: Yes (Other)
  Sender: FDA-Public Use
  Company Number: PHEH2011US00483

PATIENT
  Sex: Male

DRUGS (9)
  1. ZOMETA [Suspect]
     Dosage: 4 MG, QMO
     Route: 042
     Dates: start: 20070409, end: 20080319
  2. ATENOLOL [Concomitant]
     Dosage: 25 MG
  3. ASPIRIN [Concomitant]
     Dosage: 81 MG,
  4. PLAVIX [Concomitant]
     Dosage: 75 MG,
  5. AVAPRO [Concomitant]
     Dosage: 10 MG,
  6. LIPITOR [Concomitant]
     Dosage: 80 MG
  7. ZETIA [Concomitant]
     Dosage: 10 MG
  8. B-12 [Concomitant]
  9. LUPRON [Concomitant]

REACTIONS (86)
  - Osteonecrosis of jaw [Unknown]
  - Pain [Unknown]
  - Infection [Unknown]
  - Deformity [Unknown]
  - Injury [Unknown]
  - Anxiety [Unknown]
  - Physical disability [Unknown]
  - Ischaemic cardiomyopathy [Unknown]
  - Thrombosis [Unknown]
  - Nephrolithiasis [Unknown]
  - Hiatus hernia [Unknown]
  - Lymphadenopathy [Unknown]
  - Pneumonia [Unknown]
  - Peptic ulcer [Unknown]
  - Upper gastrointestinal haemorrhage [Unknown]
  - Barrett^s oesophagus [Unknown]
  - Laryngeal squamous cell carcinoma [Unknown]
  - Mass [Unknown]
  - Osteosclerosis [Unknown]
  - Metastases to bone [Unknown]
  - Tooth loss [Unknown]
  - Tooth avulsion [Unknown]
  - Dry mouth [Unknown]
  - Tooth infection [Unknown]
  - Swelling face [Recovered/Resolved]
  - Bone lesion [Unknown]
  - Loose tooth [Unknown]
  - Hypothyroidism [Unknown]
  - Dyspnoea [Unknown]
  - Disease progression [Unknown]
  - Tooth abscess [Unknown]
  - Bronchitis chronic [Unknown]
  - Dyslipidaemia [Unknown]
  - Diverticulum [Unknown]
  - Dysgeusia [Unknown]
  - Sinusitis [Unknown]
  - Cholelithiasis [Unknown]
  - Pulmonary granuloma [Unknown]
  - Gastrooesophageal reflux disease [Unknown]
  - Pain in jaw [Unknown]
  - Facial pain [Unknown]
  - Bundle branch block left [Unknown]
  - Oropharyngeal cancer [Unknown]
  - Device malfunction [Unknown]
  - Glottis carcinoma [Unknown]
  - Duodenal ulcer [Unknown]
  - Pulmonary mass [Unknown]
  - Pulmonary fibrosis [Unknown]
  - Oesophageal carcinoma [Unknown]
  - Metastases to spine [Unknown]
  - Glucose tolerance impaired [Unknown]
  - Gastrointestinal tract adenoma [Unknown]
  - Inguinal hernia [Unknown]
  - Left ventricular dysfunction [Unknown]
  - Akinesia [Unknown]
  - Periostitis [Unknown]
  - Parotid gland enlargement [Unknown]
  - Hyperaemia [Unknown]
  - Pathological fracture [Unknown]
  - Ventricular hypertrophy [Unknown]
  - Mitral valve incompetence [Unknown]
  - Aortic valve calcification [Unknown]
  - Viral pharyngitis [Unknown]
  - Melaena [Unknown]
  - Tricuspid valve incompetence [Unknown]
  - Dental caries [Unknown]
  - Oesophageal ulcer [Recovered/Resolved]
  - Leukocytosis [Unknown]
  - Parotitis [Unknown]
  - Chronic obstructive pulmonary disease [Unknown]
  - Ejection fraction abnormal [Unknown]
  - Atelectasis [Unknown]
  - Bronchiectasis [Unknown]
  - Diverticulum intestinal [Unknown]
  - Spleen disorder [Unknown]
  - Gastric disorder [Unknown]
  - Hepatic lesion [Unknown]
  - Connective tissue disorder [Unknown]
  - Urethral dilatation [Unknown]
  - Bone fragmentation [Unknown]
  - Nausea [Unknown]
  - Vomiting [Unknown]
  - Back pain [Unknown]
  - Arthralgia [Unknown]
  - Bradycardia [Unknown]
  - Abdominal distension [Unknown]
